FAERS Safety Report 19079642 (Version 1)
Quarter: 2021Q1

REPORT INFORMATION
  Report Type: Other
  Country: FR (occurrence: FR)
  Receive Date: 20210331
  Receipt Date: 20210331
  Transmission Date: 20210420
  Serious: Yes (Death, Hospitalization, Other)
  Sender: FDA-Public Use
  Company Number: FR-VALIDUS PHARMACEUTICALS LLC-FR-2021VAL000787

PATIENT
  Age: 68 Year
  Sex: Female

DRUGS (7)
  1. DIPRIVAN [Concomitant]
     Active Substance: PROPOFOL
     Dosage: UNK
     Dates: start: 20180905, end: 20180925
  2. KETAMINE HYDROCHLORIDE. [Concomitant]
     Active Substance: KETAMINE HYDROCHLORIDE
     Indication: EPILEPSY
     Dosage: UNK
     Dates: start: 20180908, end: 20180912
  3. THIOPENTAL                         /00053402/ [Concomitant]
     Active Substance: THIOPENTAL SODIUM
     Indication: EPILEPSY
     Dosage: UNK
     Dates: start: 20180905, end: 20180912
  4. METRONIDAZOLE. [Suspect]
     Active Substance: METRONIDAZOLE
     Indication: PRODUCT USED FOR UNKNOWN INDICATION
     Dosage: UNK UNK; ORAL
     Dates: start: 20180908, end: 20180912
  5. CEFOTAXIME SODIUM [Suspect]
     Active Substance: CEFOTAXIME SODIUM
     Indication: PRODUCT USED FOR UNKNOWN INDICATION
     Dosage: UNK; IV BOLUS
     Dates: start: 20180908, end: 20180912
  6. LEVETIRACETAM. [Suspect]
     Active Substance: LEVETIRACETAM
     Indication: EPILEPSY
     Dosage: UNK
     Dates: start: 20180905, end: 20180916
  7. URBANYL [Concomitant]
     Active Substance: CLOBAZAM
     Indication: EPILEPSY

REACTIONS (2)
  - Cholestasis [Recovering/Resolving]
  - Death [Fatal]

NARRATIVE: CASE EVENT DATE: 20180910
